FAERS Safety Report 8263831-6 (Version None)
Quarter: 2012Q2

REPORT INFORMATION
  Report Type: 
  Country: None (occurrence: None)
  Receive Date: 20120405
  Receipt Date: 20120403
  Transmission Date: 20120825
  Serious: Yes (Other)
  Sender: FDA-Public Use
  Company Number: US-MERCK-1204USA00473

PATIENT
  Sex: Female

DRUGS (3)
  1. FOSAMAX [Suspect]
     Route: 048
     Dates: start: 20080201, end: 20080801
  2. ACTONEL [Suspect]
     Route: 048
     Dates: start: 20080801, end: 20111201
  3. FOSAMAX [Suspect]
     Route: 048
     Dates: start: 19990101, end: 20080201

REACTIONS (2)
  - FEMUR FRACTURE [None]
  - LOW TURNOVER OSTEOPATHY [None]
